FAERS Safety Report 7541228-1 (Version None)
Quarter: 2011Q2

REPORT INFORMATION
  Report Type: 
  Country: None (occurrence: None)
  Receive Date: 20110610
  Receipt Date: 20110607
  Transmission Date: 20111010
  Serious: Yes (Death, Congenital Anomaly)
  Sender: FDA-Public Use
  Company Number: US-MERCK-1009USA03227B1

PATIENT

DRUGS (3)
  1. INTELENCE [Suspect]
     Indication: ANTIRETROVIRAL THERAPY
     Route: 064
  2. EPZICOM [Suspect]
     Indication: ANTIRETROVIRAL THERAPY
     Route: 064
  3. ISENTRESS [Suspect]
     Indication: ANTIRETROVIRAL THERAPY
     Route: 064

REACTIONS (3)
  - INTRA-UTERINE DEATH [None]
  - DRUG EXPOSURE DURING PREGNANCY [None]
  - PYELOCALIECTASIS [None]
